FAERS Safety Report 25891393 (Version 1)
Quarter: 2025Q4

REPORT INFORMATION
  Report Type: Report from Study
  Country: CA (occurrence: CA)
  Receive Date: 20251007
  Receipt Date: 20251007
  Transmission Date: 20260119
  Serious: Yes (Other)
  Sender: BIOCON
  Company Number: CA-BIOCON BIOLOGICS LIMITED-BBL2025005506

PATIENT

DRUGS (7)
  1. ADALIMUMAB [Suspect]
     Active Substance: ADALIMUMAB
     Indication: Crohn^s disease
     Dosage: 40 MILLIGRAM, QW
     Route: 065
  2. ADALIMUMAB [Suspect]
     Active Substance: ADALIMUMAB
  3. ADALIMUMAB [Suspect]
     Active Substance: ADALIMUMAB
  4. ADALIMUMAB [Suspect]
     Active Substance: ADALIMUMAB
  5. ADALIMUMAB [Suspect]
     Active Substance: ADALIMUMAB
  6. HYDROMORPHONE [Concomitant]
     Active Substance: HYDROMORPHONE
     Indication: Product used for unknown indication
     Dosage: 2 MILLIGRAM, Q4H
     Route: 065
  7. DULOXETINE [Concomitant]
     Active Substance: DULOXETINE
     Indication: Product used for unknown indication
     Dosage: 20 MILLIGRAM
     Route: 065

REACTIONS (4)
  - Haemorrhage [Not Recovered/Not Resolved]
  - Rectal prolapse [Not Recovered/Not Resolved]
  - Asthenia [Not Recovered/Not Resolved]
  - Pneumonia [Not Recovered/Not Resolved]
